FAERS Safety Report 12810276 (Version 2)
Quarter: 2016Q4

REPORT INFORMATION
  Report Type: Spontaneous
  Country: JP (occurrence: JP)
  Receive Date: 20161005
  Receipt Date: 20161118
  Transmission Date: 20170207
  Serious: Yes (Death)
  Sender: FDA-Public Use
  Company Number: JP-SUN PHARMACEUTICAL INDUSTRIES LTD-2016R1-125214

PATIENT
  Sex: Female
  Weight: 51.2 kg

DRUGS (1)
  1. CAFFEINE. [Suspect]
     Active Substance: CAFFEINE
     Indication: PRODUCT USED FOR UNKNOWN INDICATION
     Dosage: UNK
     Route: 048

REACTIONS (2)
  - Toxicity to various agents [Fatal]
  - Completed suicide [Fatal]
